FAERS Safety Report 9004583 (Version 1)
Quarter: 2013Q1

REPORT INFORMATION
  Report Type: Spontaneous
  Country: US (occurrence: None)
  Receive Date: 20130103
  Receipt Date: 20130103
  Transmission Date: 20140127
  Serious: No
  Sender: FDA-Public Use
  Company Number: None

PATIENT
  Sex: Female
  Weight: 63.5 kg

DRUGS (1)
  1. AMOXICILLIN [Suspect]
     Indication: SINUSITIS
     Dosage: 1 CAPSULE 3 TIMES A DAY PO
     Route: 048
     Dates: start: 20121208, end: 20121215

REACTIONS (2)
  - Mood swings [None]
  - Aggression [None]
